FAERS Safety Report 14944145 (Version 1)
Quarter: 2018Q2

REPORT INFORMATION
  Report Type: Spontaneous
  Country: US (occurrence: US)
  Receive Date: 20180528
  Receipt Date: 20180528
  Transmission Date: 20180711
  Serious: Yes (Other)
  Sender: FDA-Public Use
  Company Number: US-ELI_LILLY_AND_COMPANY-US201805008618

PATIENT
  Age: 46 Year
  Sex: Male
  Weight: 68 kg

DRUGS (6)
  1. WELLBUTRIN [Suspect]
     Active Substance: BUPROPION HYDROCHLORIDE
     Indication: DEPRESSION
     Dosage: UNK UNK, UNKNOWN
     Route: 065
  2. PEGINTRON [Suspect]
     Active Substance: PEGINTERFERON ALFA-2B
     Indication: PRODUCT USED FOR UNKNOWN INDICATION
     Dosage: UNK UNK, UNKNOWN
     Route: 065
     Dates: start: 200111, end: 20020412
  3. WELLBUTRIN [Suspect]
     Active Substance: BUPROPION HYDROCHLORIDE
     Indication: DEPRESSION
  4. REBETOL [Suspect]
     Active Substance: RIBAVIRIN
     Indication: ILL-DEFINED DISORDER
     Dosage: UNK UNK, UNKNOWN
     Route: 048
     Dates: start: 200111, end: 20020419
  5. ZYPREXA [Suspect]
     Active Substance: OLANZAPINE
     Indication: PSYCHOTIC DISORDER
     Dosage: UNK UNK, UNKNOWN
     Route: 065
  6. ALCOHOL. [Suspect]
     Active Substance: ALCOHOL
     Indication: ILL-DEFINED DISORDER
     Dosage: UNK UNK, UNKNOWN
     Route: 065

REACTIONS (18)
  - Headache [Unknown]
  - Nightmare [Unknown]
  - Irritability [Unknown]
  - Suicide attempt [Unknown]
  - Visual impairment [Unknown]
  - Malaise [Unknown]
  - Constipation [Unknown]
  - Homicide [Unknown]
  - Dependence [Unknown]
  - Vomiting [Unknown]
  - Decreased appetite [Unknown]
  - Dyspnoea [Unknown]
  - Impulse-control disorder [Unknown]
  - Night sweats [Unknown]
  - Nausea [Unknown]
  - Alopecia [Unknown]
  - Depression [Unknown]
  - Psychotic disorder [Unknown]

NARRATIVE: CASE EVENT DATE: 20020425
